FAERS Safety Report 4585597-3 (Version None)
Quarter: 2005Q1

REPORT INFORMATION
  Report Type: 
  Country: None (occurrence: None)
  Receive Date: 20050214
  Receipt Date: 20041007
  Transmission Date: 20050727
  Serious: Yes (Hospitalization)
  Sender: FDA-Public Use
  Company Number: 05-094

PATIENT
  Age: 65 Year
  Sex: Male

DRUGS (15)
  1. DEXAMETHASONE [Suspect]
     Indication: MULTIPLE MYELOMA
     Dosage: 40 MG/DAY, ORAL
     Route: 048
     Dates: start: 20011014, end: 20011114
  2. CYCLOPHOSPHAMIDE [Suspect]
     Indication: MULTIPLE MYELOMA
     Dosage: 1500 MG, INTRAVENOUS
     Route: 042
     Dates: start: 20011123, end: 20011123
  3. CYCLOPHOSPHAMIDE [Concomitant]
  4. EPOETIN ALFA [Concomitant]
  5. RANITIDINE [Concomitant]
  6. TRIMETHOPRIM-SULFAMETHOXAZOLE [Concomitant]
  7. NEUPOGEN [Concomitant]
  8. FLUTAMIDE [Concomitant]
  9. CALCITONIN [Concomitant]
  10. ACYCLOVIR [Concomitant]
  11. MUPIROCIN [Concomitant]
  12. ONDANSETRON [Concomitant]
  13. MULVITAMINS [Concomitant]
  14. MINERAL TAB [Concomitant]
  15. THALIDOMIDE [Concomitant]

REACTIONS (23)
  - BLOOD PRESSURE INCREASED [None]
  - CARDIAC FAILURE CONGESTIVE [None]
  - CHEST PAIN [None]
  - CHILLS [None]
  - COGNITIVE DISORDER [None]
  - CONSTIPATION [None]
  - COUGH [None]
  - DISEASE PROGRESSION [None]
  - DYSPNOEA [None]
  - FALL [None]
  - FEBRILE NEUTROPENIA [None]
  - HEART RATE INCREASED [None]
  - HYPOAESTHESIA [None]
  - INFUSION SITE BRUISING [None]
  - MOUTH ULCERATION [None]
  - NASAL CONGESTION [None]
  - NAUSEA [None]
  - ODYNOPHAGIA [None]
  - PANCYTOPENIA [None]
  - PARAESTHESIA [None]
  - PLEURAL EFFUSION [None]
  - PNEUMONIA [None]
  - RHINORRHOEA [None]
